FAERS Safety Report 7753981-2 (Version None)
Quarter: 2011Q3

REPORT INFORMATION
  Report Type: 
  Country: None (occurrence: None)
  Receive Date: 20110915
  Receipt Date: 20110907
  Transmission Date: 20111222
  Serious: Yes (Other)
  Sender: FDA-Public Use
  Company Number: US-ACTELION-A-US2011-53420

PATIENT

DRUGS (1)
  1. TRACLEER [Suspect]
     Indication: PULMONARY ARTERIAL HYPERTENSION
     Dosage: UNK
     Route: 048
     Dates: start: 20020730

REACTIONS (5)
  - DRUG INEFFECTIVE [None]
  - FOOT FRACTURE [None]
  - FALL [None]
  - DIZZINESS [None]
  - SYNCOPE [None]
